FAERS Safety Report 20386197 (Version 1)
Quarter: 2022Q1

REPORT INFORMATION
  Report Type: Report from Study
  Country: US (occurrence: US)
  Receive Date: 20220127
  Receipt Date: 20220127
  Transmission Date: 20220424
  Serious: Yes (Death, Hospitalization, Other)
  Sender: FDA-Public Use
  Company Number: US-TAKEDA-2016US006986

PATIENT
  Age: 46 Year
  Sex: Male
  Weight: 88 kg

DRUGS (18)
  1. MOBOCERTINIB [Suspect]
     Active Substance: MOBOCERTINIB
     Indication: Lung adenocarcinoma
     Dosage: 10 MG, QD
     Route: 048
     Dates: start: 20160902, end: 20160914
  2. TYLENOL [Concomitant]
     Active Substance: ACETAMINOPHEN
     Indication: Myalgia
     Dosage: 650 MG, Q6H, PRN
     Route: 048
     Dates: start: 20160714
  3. TYLENOL [Concomitant]
     Active Substance: ACETAMINOPHEN
     Indication: Pyrexia
  4. VITAMIN D3 [Concomitant]
     Active Substance: CHOLECALCIFEROL
     Indication: Vitamin supplementation
     Dosage: UNK
     Route: 048
     Dates: start: 20160714
  5. LOVENOX [Concomitant]
     Active Substance: ENOXAPARIN SODIUM
     Indication: Deep vein thrombosis
     Dosage: UNK
     Route: 058
     Dates: start: 20160728
  6. FOLIC ACID [Concomitant]
     Active Substance: FOLIC ACID
     Indication: Vitamin supplementation
     Dosage: 1 MG, QD
     Route: 048
     Dates: start: 20160609
  7. XALATAN [Concomitant]
     Active Substance: LATANOPROST
     Indication: Glaucoma
     Dosage: 1 GTT, QD, BOTH EYES, AT BEDTIME
     Route: 047
     Dates: start: 20160714
  8. MAGNESIUM OXIDE [Concomitant]
     Active Substance: MAGNESIUM OXIDE
     Indication: Vitamin supplementation
     Dosage: 250 MG, QD
     Route: 048
     Dates: start: 20160714
  9. OXYCODONE [Concomitant]
     Active Substance: OXYCODONE
     Indication: Musculoskeletal pain
     Dosage: 10 MG, Q4H, PRN, WITH FOOD
     Route: 048
     Dates: start: 20160609
  10. FISH OIL [Concomitant]
     Active Substance: FISH OIL
     Indication: Vitamin supplementation
     Dosage: 500 MG, UNK
     Route: 048
     Dates: start: 20160609
  11. VIAGRA [Concomitant]
     Active Substance: SILDENAFIL CITRATE
     Indication: Erectile dysfunction
     Dosage: UNK
     Route: 048
     Dates: start: 20160714
  12. THERAPEUTIC MULTIVITAMINS [Concomitant]
     Indication: Vitamin supplementation
     Dosage: UNK
     Route: 048
     Dates: start: 20160714
  13. DECADRON                           /00016005/ [Concomitant]
     Indication: Decreased appetite
     Dosage: 2 MG, QD
     Route: 048
     Dates: start: 20160609
  14. CARDIZEM                           /00489701/ [Concomitant]
     Indication: Atrial fibrillation
     Dosage: UNK
     Route: 048
     Dates: start: 20160914, end: 20160914
  15. ATIVAN [Concomitant]
     Active Substance: LORAZEPAM
     Indication: Anxiety
     Dosage: UNK
     Route: 042
     Dates: start: 20160919
  16. SODIUM CHLORIDE [Concomitant]
     Active Substance: SODIUM CHLORIDE
     Indication: Dehydration
     Dosage: UNK
     Route: 042
     Dates: start: 20160914
  17. DILTIAZEM [Concomitant]
     Active Substance: DILTIAZEM
     Indication: Hypotension
     Dosage: UNK
     Route: 048
     Dates: start: 20160914
  18. DILAUDID [Concomitant]
     Active Substance: HYDROMORPHONE HYDROCHLORIDE
     Indication: Pain
     Dosage: UNK
     Route: 048
     Dates: start: 20160914

REACTIONS (3)
  - Thrombocytopenia [Not Recovered/Not Resolved]
  - Neoplasm progression [Fatal]
  - Dyspnoea [Not Recovered/Not Resolved]

NARRATIVE: CASE EVENT DATE: 20160914
